FAERS Safety Report 17235413 (Version 1)
Quarter: 2020Q1

REPORT INFORMATION
  Report Type: Spontaneous
  Country: US (occurrence: US)
  Receive Date: 20200103
  Receipt Date: 20200103
  Transmission Date: 20200409
  Serious: Yes (Other)
  Sender: FDA-Public Use
  Company Number: None

PATIENT
  Age: 33 Year
  Sex: Male
  Weight: 82.7 kg

DRUGS (1)
  1. EPOETIN [Suspect]
     Active Substance: ERYTHROPOIETIN

REACTIONS (2)
  - Ischaemic stroke [None]
  - Anaemia [None]

NARRATIVE: CASE EVENT DATE: 20191228
